FAERS Safety Report 23848633 (Version 1)
Quarter: 2024Q2

REPORT INFORMATION
  Report Type: Spontaneous
  Country: US (occurrence: US)
  Receive Date: 20240513
  Receipt Date: 20240513
  Transmission Date: 20240715
  Serious: No
  Sender: FDA-Public Use
  Company Number: US-PERRIGO-24US001704

PATIENT
  Sex: Female

DRUGS (2)
  1. MICONAZOLE 3 COMBINATION PACK [Suspect]
     Active Substance: MICONAZOLE NITRATE
     Indication: Vulvovaginal pruritus
     Dosage: 200 MG, QD
     Route: 067
  2. MICONAZOLE 3 COMBINATION PACK [Suspect]
     Active Substance: MICONAZOLE NITRATE
     Dosage: UNKNOWN, SINGLE
     Route: 067

REACTIONS (2)
  - Therapeutic product effect incomplete [Unknown]
  - Underdose [Unknown]
